FAERS Safety Report 5370487-9 (Version None)
Quarter: 2007Q2

REPORT INFORMATION
  Report Type: 
  Country: None (occurrence: None)
  Receive Date: 20070625
  Receipt Date: 20070625
  Transmission Date: 20071010
  Serious: No
  Sender: FDA-Public Use
  Company Number: None

PATIENT
  Age: 56 Year

DRUGS (1)
  1. GEODON [Suspect]
     Dosage: 40 DAILY PO
     Route: 048
     Dates: start: 20070316, end: 20070318

REACTIONS (1)
  - NERVOUSNESS [None]
